FAERS Safety Report 10814536 (Version 1)
Quarter: 2015Q1

REPORT INFORMATION
  Report Type: Report from Study
  Country: US (occurrence: US)
  Receive Date: 20150218
  Receipt Date: 20150218
  Transmission Date: 20150721
  Serious: No
  Sender: FDA-Public Use
  Company Number: US-ABBVIE-14K-163-1278808-00

PATIENT
  Age: 63 Year
  Sex: Female

DRUGS (7)
  1. VOLTAREN [Suspect]
     Active Substance: DICLOFENAC SODIUM
     Indication: RHEUMATOID ARTHRITIS
     Route: 065
  2. LIPITOR [Concomitant]
     Active Substance: ATORVASTATIN CALCIUM
     Indication: BLOOD CHOLESTEROL INCREASED
     Dates: start: 20140825
  3. PLAQUENIL [Concomitant]
     Active Substance: HYDROXYCHLOROQUINE SULFATE
     Indication: RHEUMATOID ARTHRITIS
  4. HUMIRA [Suspect]
     Active Substance: ADALIMUMAB
     Indication: RHEUMATOID ARTHRITIS
     Route: 065
     Dates: start: 20140608, end: 201409
  5. LEVOTHYROXINE [Concomitant]
     Active Substance: LEVOTHYROXINE
     Indication: THYROID DISORDER
  6. PRAVASTATIN [Suspect]
     Active Substance: PRAVASTATIN\PRAVASTATIN SODIUM
     Indication: BLOOD CHOLESTEROL INCREASED
     Route: 065
  7. VOLTAREN [Suspect]
     Active Substance: DICLOFENAC SODIUM
     Route: 065

REACTIONS (13)
  - Wrong technique in drug usage process [Unknown]
  - Rash macular [Not Recovered/Not Resolved]
  - Injection site erythema [Not Recovered/Not Resolved]
  - Hepatic enzyme increased [Unknown]
  - Drug ineffective [Not Recovered/Not Resolved]
  - Rash pruritic [Not Recovered/Not Resolved]
  - Incorrect dose administered [Unknown]
  - Rash papular [Not Recovered/Not Resolved]
  - Rash papular [Recovering/Resolving]
  - Injection site urticaria [Recovered/Resolved]
  - Injection site rash [Not Recovered/Not Resolved]
  - Injection site erythema [Recovered/Resolved]
  - Malaise [Unknown]

NARRATIVE: CASE EVENT DATE: 2014
